FAERS Safety Report 20797215 (Version 2)
Quarter: 2022Q2

REPORT INFORMATION
  Report Type: Spontaneous
  Country: US (occurrence: US)
  Receive Date: 20220506
  Receipt Date: 20220606
  Transmission Date: 20220721
  Serious: Yes (Other)
  Sender: FDA-Public Use
  Company Number: US-JOURNEY MEDICAL CORPORATION-2022JNY00634

PATIENT
  Sex: Female
  Weight: 45.351 kg

DRUGS (12)
  1. QBREXZA [Suspect]
     Active Substance: GLYCOPYRRONIUM TOSYLATE
     Indication: Hyperhidrosis
     Dosage: 1 CLOTH, APPLIED TO BOTH ARMPITS, 1X/DAY
     Route: 061
     Dates: start: 202203, end: 202204
  2. QBREXZA [Suspect]
     Active Substance: GLYCOPYRRONIUM TOSYLATE
     Dosage: 1 CLOTH, APPLIED TO BOTH ARMPITS, 1X/DAY
     Route: 061
     Dates: start: 20220416, end: 20220419
  3. SUNOSI [Concomitant]
     Active Substance: SOLRIAMFETOL
     Dosage: 150 MG, 1X/DAY IN THE MORNING
     Route: 048
     Dates: start: 20220329
  4. ADDERALL XR [Concomitant]
     Active Substance: AMPHETAMINE ASPARTATE\AMPHETAMINE SULFATE\DEXTROAMPHETAMINE SACCHARATE\DEXTROAMPHETAMINE SULFATE
     Dosage: 20 MG, 1X/DAY IN THE AFTERNOON
     Route: 048
     Dates: start: 20220329
  5. SEASONIQUE [Concomitant]
     Active Substance: ETHINYL ESTRADIOL\LEVONORGESTREL
     Dosage: 0.15 MG/30 ?G, 1X/DAY, NIGHTLY
     Route: 048
     Dates: start: 20220210
  6. NEURONTIN [Concomitant]
     Active Substance: GABAPENTIN
     Dosage: 100 MG, 1X/DAY NIGHTLY
     Dates: start: 20220208
  7. PROTANDIM NRF 1 [Concomitant]
  8. PROTANDIM NRF 2 [Concomitant]
  9. NAD [Concomitant]
  10. PROBIOTICS NOS [Concomitant]
     Active Substance: PROBIOTICS NOS
  11. FISH OIL [Concomitant]
     Active Substance: FISH OIL
  12. BIOTIN [Concomitant]
     Active Substance: BIOTIN

REACTIONS (14)
  - Anisocoria [Recovering/Resolving]
  - Pupillary reflex impaired [Recovering/Resolving]
  - Eyelid function disorder [Not Recovered/Not Resolved]
  - Asthenopia [Not Recovered/Not Resolved]
  - Dizziness [Recovering/Resolving]
  - Palpitations [Unknown]
  - Anxiety [Unknown]
  - Cerebral disorder [Unknown]
  - Performance status decreased [Not Recovered/Not Resolved]
  - Haemoglobin decreased [Unknown]
  - Alanine aminotransferase decreased [Unknown]
  - Anion gap increased [Unknown]
  - Blood alkaline phosphatase decreased [Unknown]
  - Product dose omission issue [Recovered/Resolved]

NARRATIVE: CASE EVENT DATE: 20220101
